FAERS Safety Report 13577838 (Version 1)
Quarter: 2017Q2

REPORT INFORMATION
  Report Type: Spontaneous
  Country: IT (occurrence: IT)
  Receive Date: 20170524
  Receipt Date: 20170524
  Transmission Date: 20170830
  Serious: Yes (Other)
  Sender: FDA-Public Use
  Company Number: IT-JNJFOC-20170522393

PATIENT
  Age: 48 Year
  Sex: Male
  Weight: 73 kg

DRUGS (2)
  1. HYDROXYCHLOROQUINE PHOSPHATE [Suspect]
     Active Substance: HYDROXYCHLOROQUINE DIPHOSPHATE
     Indication: ANTIPHOSPHOLIPID SYNDROME
     Route: 048
     Dates: start: 20110101, end: 20170515
  2. XARELTO [Suspect]
     Active Substance: RIVAROXABAN
     Indication: ANTIPHOSPHOLIPID SYNDROME
     Route: 048
     Dates: start: 20160301

REACTIONS (2)
  - Fall [Recovering/Resolving]
  - Epilepsy [Recovering/Resolving]

NARRATIVE: CASE EVENT DATE: 20170214
